FAERS Safety Report 8540256-7 (Version None)
Quarter: 2012Q3

REPORT INFORMATION
  Report Type: 
  Country: None (occurrence: None)
  Receive Date: 20120726
  Receipt Date: 20120719
  Transmission Date: 20120928
  Serious: Yes (Other)
  Sender: FDA-Public Use
  Company Number: CN-BAXTER-2012BAX012349

PATIENT
  Sex: Female
  Weight: 18 kg

DRUGS (2)
  1. SODIUM CHLORIDE INJ [Suspect]
     Indication: MEDICATION DILUTION
     Route: 041
     Dates: start: 20101022, end: 20101022
  2. AMBROXOL HYDROCHLORIDE [Suspect]
     Indication: MEDICATION DILUTION

REACTIONS (1)
  - ANAPHYLACTOID REACTION [None]
